FAERS Safety Report 4683864-6 (Version None)
Quarter: 2005Q2

REPORT INFORMATION
  Report Type: 
  Country: None (occurrence: None)
  Receive Date: 20050606
  Receipt Date: 20050606
  Transmission Date: 20051028
  Serious: Yes (Hospitalization)
  Sender: FDA-Public Use
  Company Number: None

PATIENT
  Age: 80 Year
  Sex: Male

DRUGS (13)
  1. DIGOXIN [Suspect]
  2. IMDUR [Concomitant]
  3. PLAVIX [Concomitant]
  4. NIASPAN [Concomitant]
  5. EXELON [Concomitant]
  6. VERAPAMIL [Concomitant]
  7. MICARDIS [Concomitant]
  8. LERBID [Concomitant]
  9. ACTOS [Concomitant]
  10. ELAVIL [Concomitant]
  11. LIPITOR [Concomitant]
  12. ZANTAC [Concomitant]
  13. XANAX [Concomitant]

REACTIONS (2)
  - ASTHENIA [None]
  - CARDIOACTIVE DRUG LEVEL INCREASED [None]
